FAERS Safety Report 6335933-2 (Version None)
Quarter: 2009Q3

REPORT INFORMATION
  Report Type: 
  Country: None (occurrence: None)
  Receive Date: 20090831
  Receipt Date: 20090831
  Transmission Date: 20100115
  Serious: Yes (Life-Threatening, Disabling)
  Sender: FDA-Public Use
  Company Number: None

PATIENT
  Age: 39 Year
  Sex: Female
  Weight: 57.6068 kg

DRUGS (2)
  1. NEURONTIN [Suspect]
     Indication: CONCUSSION
     Dosage: 300 MG  4X'S A DAY;  1800 MG A DAY
     Dates: start: 20010419, end: 20030911
  2. NEURONTIN [Suspect]
     Indication: HEADACHE
     Dosage: 300 MG  4X'S A DAY;  1800 MG A DAY
     Dates: start: 20010419, end: 20030911

REACTIONS (5)
  - BRAIN INJURY [None]
  - CONVULSION [None]
  - LOSS OF CONSCIOUSNESS [None]
  - OFF LABEL USE [None]
  - STATUS EPILEPTICUS [None]
